FAERS Safety Report 22058622 (Version 4)
Quarter: 2023Q1

REPORT INFORMATION
  Report Type: Other
  Country: SG (occurrence: None)
  Receive Date: 20230303
  Receipt Date: 20230317
  Transmission Date: 20230417
  Serious: Yes (Hospitalization)
  Sender: FDA-Public Use
  Company Number: SG-ROCHE-3297150

PATIENT
  Age: 58 Year
  Sex: Male
  Weight: 65.8 kg

DRUGS (2)
  1. ATEZOLIZUMAB [Suspect]
     Active Substance: ATEZOLIZUMAB
     Indication: Hepatocellular carcinoma
     Dosage: ON 09/FEB/2023 MOST RECENT DOSE OF ATEZOLIZUMAB ADMIN PRIOR AE AND SAE 1200 MG
     Route: 041
     Dates: start: 20230120
  2. BEVACIZUMAB [Suspect]
     Active Substance: BEVACIZUMAB
     Indication: Hepatocellular carcinoma
     Route: 065
     Dates: start: 20230120

REACTIONS (1)
  - Pyrexia [Recovered/Resolved]

NARRATIVE: CASE EVENT DATE: 20230222
